FAERS Safety Report 20732079 (Version 1)
Quarter: 2022Q2

REPORT INFORMATION
  Report Type: Spontaneous
  Country: US (occurrence: US)
  Receive Date: 20220420
  Receipt Date: 20220420
  Transmission Date: 20220721
  Serious: Yes (Other)
  Sender: FDA-Public Use
  Company Number: US-PFIZER INC-202200541600

PATIENT
  Age: 40 Year
  Sex: Male

DRUGS (1)
  1. VORICONAZOLE [Suspect]
     Active Substance: VORICONAZOLE
     Indication: Trichosporon infection
     Dosage: UNK

REACTIONS (4)
  - Infective periostitis [Recovering/Resolving]
  - Hypertrophic osteoarthropathy [Recovering/Resolving]
  - Clubbing [Recovering/Resolving]
  - Off label use [Unknown]
